FAERS Safety Report 22611859 (Version 1)
Quarter: 2023Q2

REPORT INFORMATION
  Report Type: Spontaneous
  Country: ES (occurrence: ES)
  Receive Date: 20230616
  Receipt Date: 20230616
  Transmission Date: 20230721
  Serious: Yes (Hospitalization)
  Sender: FDA-Public Use
  Company Number: None

PATIENT
  Age: 64 Year
  Sex: Female

DRUGS (10)
  1. KEYTRUDA [Suspect]
     Active Substance: PEMBROLIZUMAB
     Dosage: 200 MILLIGRAM
     Route: 042
     Dates: start: 20230405, end: 20230426
  2. PREDNISOLONE [Concomitant]
     Active Substance: PREDNISOLONE
     Route: 048
     Dates: start: 20230517
  3. ATORVASTATIN [Concomitant]
     Active Substance: ATORVASTATIN
     Indication: Hypercholesterolaemia
     Route: 048
     Dates: start: 20160615
  4. LEVOTHYROXINE SODIUM [Concomitant]
     Active Substance: LEVOTHYROXINE SODIUM
     Route: 048
     Dates: start: 20160502
  5. SERC FLAS [Concomitant]
     Route: 048
     Dates: start: 20220204
  6. FOLIC ACID [Concomitant]
     Active Substance: FOLIC ACID
     Route: 048
     Dates: start: 20220922
  7. OMEPRAZOL A [Concomitant]
     Dates: start: 20230306
  8. VALTREX [Concomitant]
     Active Substance: VALACYCLOVIR HYDROCHLORIDE
     Route: 048
     Dates: start: 20220922
  9. ENALAPRIL [Concomitant]
     Active Substance: ENALAPRIL
     Route: 048
     Dates: start: 20120724
  10. SULFAMETHOXAZOLE\TRIMETHOPRIM [Concomitant]
     Active Substance: SULFAMETHOXAZOLE\TRIMETHOPRIM
     Route: 048
     Dates: start: 20220922

REACTIONS (1)
  - Hypertransaminasaemia [Not Recovered/Not Resolved]

NARRATIVE: CASE EVENT DATE: 20230519
